FAERS Safety Report 14335740 (Version 1)
Quarter: 2017Q4

REPORT INFORMATION
  Report Type: Spontaneous
  Country: US (occurrence: US)
  Receive Date: 20171229
  Receipt Date: 20171229
  Transmission Date: 20180321
  Serious: Yes (Death, Other)
  Sender: FDA-Public Use
  Company Number: US-APOTEX-2017AP022953

PATIENT
  Age: 31 Year
  Sex: Female

DRUGS (4)
  1. ESCITALOPRAM [Suspect]
     Active Substance: ESCITALOPRAM OXALATE
     Dosage: UNK (ASPIRATION)
     Route: 050
  2. ESCITALOPRAM [Suspect]
     Active Substance: ESCITALOPRAM OXALATE
     Indication: PRODUCT USED FOR UNKNOWN INDICATION
     Dosage: UNK (INGST?ASPIR)
     Route: 050
  3. ALCOHOL. [Suspect]
     Active Substance: ALCOHOL
     Indication: PRODUCT USED FOR UNKNOWN INDICATION
     Dosage: UNK (INGST?ASPIR)
     Route: 050
  4. ALCOHOL. [Suspect]
     Active Substance: ALCOHOL
     Dosage: UNK (ASPIRATION)
     Route: 050

REACTIONS (1)
  - Completed suicide [Fatal]
